FAERS Safety Report 5958269-8 (Version None)
Quarter: 2008Q4

REPORT INFORMATION
  Report Type: 
  Country: None (occurrence: None)
  Receive Date: 20081119
  Receipt Date: 20081020
  Transmission Date: 20090506
  Serious: No
  Sender: FDA-Public Use
  Company Number: US-BAYER-200836241NA

PATIENT
  Age: 55 Year
  Sex: Female
  Weight: 113 kg

DRUGS (1)
  1. EOVIST [Suspect]
     Indication: NUCLEAR MAGNETIC RESONANCE IMAGING ABDOMINAL
     Dosage: TOTAL DAILY DOSE: 10 ML
     Route: 042
     Dates: start: 20081017, end: 20081017

REACTIONS (7)
  - CHOKING SENSATION [None]
  - DYSPNOEA [None]
  - EYE PRURITUS [None]
  - EYE SWELLING [None]
  - LACRIMATION INCREASED [None]
  - RHINORRHOEA [None]
  - SWELLING FACE [None]
